FAERS Safety Report 5248868-3 (Version None)
Quarter: 2007Q1

REPORT INFORMATION
  Report Type: 
  Country: None (occurrence: None)
  Receive Date: 20070228
  Receipt Date: 20060327
  Transmission Date: 20070707
  Serious: No
  Sender: FDA-Public Use
  Company Number: US-GLAXOSMITHKLINE-A0599170A

PATIENT
  Age: 50 Year
  Sex: Female

DRUGS (6)
  1. VALTREX [Suspect]
     Indication: DRUG USE FOR UNKNOWN INDICATION
     Dosage: 500MG TWICE PER DAY
     Route: 048
     Dates: start: 20050101
  2. PRED FORTE [Concomitant]
  3. VIGAMOX [Concomitant]
  4. PREDNISONE [Concomitant]
  5. MAXZIDE [Concomitant]
  6. VIROPTIC [Concomitant]

REACTIONS (1)
  - ENZYME ABNORMALITY [None]
